FAERS Safety Report 8939963 (Version 2)
Quarter: 2012Q4

REPORT INFORMATION
  Report Type: 
  Country: JP (occurrence: JP)
  Receive Date: 20121203
  Receipt Date: 20121204
  Transmission Date: 20130627
  Serious: Yes (Hospitalization, Other)
  Sender: FDA-Public Use
  Company Number: JP-009507513-2012SP016508

PATIENT
  Age: 60 Year
  Sex: Female
  Weight: 41 kg

DRUGS (9)
  1. PEGINTRON [Suspect]
     Indication: CHRONIC HEPATITIS C
     Dosage: 1.5 Microgram per kilogram, qw
     Route: 058
     Dates: start: 20120201, end: 20120222
  2. PEGINTRON [Suspect]
     Dosage: 1 Microgram per kilogram, qw
     Route: 058
     Dates: start: 20120229, end: 20120229
  3. REBETOL [Suspect]
     Indication: CHRONIC HEPATITIS C
     Dosage: 400 mg, qd
     Route: 048
     Dates: start: 20120201, end: 20120214
  4. REBETOL [Suspect]
     Dosage: 200 mg, qd
     Route: 048
     Dates: start: 20120215, end: 20120307
  5. TELAVIC [Suspect]
     Indication: CHRONIC HEPATITIS C
     Dosage: 2250 mg, qd
     Route: 048
     Dates: start: 20120201, end: 20120228
  6. TELAVIC [Suspect]
     Dosage: 1500 mg, qd
     Route: 048
     Dates: start: 20120229, end: 20120307
  7. MILMAG [Concomitant]
     Indication: CONSTIPATION
     Dosage: 3 DF, qd
     Route: 048
     Dates: end: 20120604
  8. SENNOSIDES [Concomitant]
     Indication: CONSTIPATION
     Dosage: 2 DF, per day as needed
     Route: 048
  9. BROTIZOLAM [Concomitant]
     Indication: INSOMNIA
     Dosage: 1 DF, qd
     Route: 048

REACTIONS (3)
  - Anaemia [Recovered/Resolved]
  - Decreased appetite [Recovering/Resolving]
  - Depression [Not Recovered/Not Resolved]
